FAERS Safety Report 11552420 (Version 1)
Quarter: 2015Q3

REPORT INFORMATION
  Report Type: Spontaneous
  Country: US (occurrence: None)
  Receive Date: 20150924
  Receipt Date: 20150924
  Transmission Date: 20151125
  Serious: Yes (Other)
  Sender: FDA-Public Use
  Company Number: None

PATIENT
  Age: 79 Year
  Sex: Female
  Weight: 72.58 kg

DRUGS (5)
  1. ADVAIR DISCUS [Concomitant]
  2. SYNTHROID [Concomitant]
     Active Substance: LEVOTHYROXINE SODIUM
  3. HCTZ [Concomitant]
     Active Substance: HYDROCHLOROTHIAZIDE
  4. LISINOPRIL. [Suspect]
     Active Substance: LISINOPRIL
     Indication: BLOOD PRESSURE INCREASED
     Route: 048
     Dates: start: 20150916, end: 20150921
  5. EFFEXCOR [Concomitant]

REACTIONS (3)
  - Blood pressure increased [None]
  - Drug resistance [None]
  - Paradoxical drug reaction [None]

NARRATIVE: CASE EVENT DATE: 20150921
